FAERS Safety Report 17638942 (Version 1)
Quarter: 2020Q2

REPORT INFORMATION
  Report Type: Spontaneous
  Country: US (occurrence: US)
  Receive Date: 20200407
  Receipt Date: 20200407
  Transmission Date: 20200713
  Serious: Yes (Hospitalization, Other)
  Sender: FDA-Public Use
  Company Number: US-NAPPMUNDI-USA-2020-0150982

PATIENT
  Sex: Female

DRUGS (2)
  1. OXYCONTIN [Suspect]
     Active Substance: OXYCODONE HYDROCHLORIDE
     Indication: PAIN IN EXTREMITY
     Route: 048
  2. PERCOCET                           /00446701/ [Suspect]
     Active Substance: ACETAMINOPHEN\OXYCODONE HYDROCHLORIDE\OXYCODONE TEREPHTHALATE
     Indication: PAIN IN EXTREMITY
     Route: 065

REACTIONS (8)
  - Hepatitis C [Unknown]
  - Stress [Unknown]
  - Drug dependence [Recovering/Resolving]
  - Emotional distress [Unknown]
  - Anxiety [Unknown]
  - Hospitalisation [Unknown]
  - Drug abuse [Unknown]
  - Pain [Unknown]
